FAERS Safety Report 23131327 (Version 1)
Quarter: 2023Q4

REPORT INFORMATION
  Report Type: Spontaneous
  Country: US (occurrence: None)
  Receive Date: 20231030
  Receipt Date: 20231030
  Transmission Date: 20240110
  Serious: Yes (Life-Threatening, Disabling, Other)
  Sender: FDA-Public Use
  Company Number: None

PATIENT
  Age: 44 Year
  Sex: Female
  Weight: 49.95 kg

DRUGS (1)
  1. PERMETHRIN [Suspect]
     Active Substance: PERMETHRIN
     Indication: Lice infestation
     Dosage: OTHER QUANTITY : 1 1;?OTHER FREQUENCY : ONCE AND REPEAT;?
     Route: 061
     Dates: start: 20230923, end: 20230928

REACTIONS (12)
  - Joint stiffness [None]
  - Influenza like illness [None]
  - Headache [None]
  - Pain [None]
  - Folliculitis [None]
  - Pruritus [None]
  - Burning sensation [None]
  - Loss of consciousness [None]
  - Paraesthesia [None]
  - Muscle spasms [None]
  - Vomiting [None]
  - Diarrhoea [None]

NARRATIVE: CASE EVENT DATE: 20230923
